FAERS Safety Report 6680742-8 (Version None)
Quarter: 2010Q2

REPORT INFORMATION
  Report Type: 
  Country: None (occurrence: None)
  Receive Date: 20100414
  Receipt Date: 20100331
  Transmission Date: 20101027
  Serious: Yes (Hospitalization, Disabling)
  Sender: FDA-Public Use
  Company Number: PHHY2010US20660

PATIENT
  Age: 72 Year
  Sex: Female
  Weight: 67.12 kg

DRUGS (2)
  1. RECLAST [Suspect]
     Indication: OSTEOPOROSIS
     Dosage: 5 MG
     Route: 042
     Dates: start: 20100127
  2. FOSAMAX [Concomitant]
     Dosage: UNK
     Dates: start: 20080101

REACTIONS (1)
  - FRACTURE DELAYED UNION [None]
